FAERS Safety Report 6308181-X (Version None)
Quarter: 2009Q3

REPORT INFORMATION
  Report Type: 
  Country: None (occurrence: None)
  Receive Date: 20090813
  Receipt Date: 20090807
  Transmission Date: 20100115
  Serious: Yes (Other)
  Sender: FDA-Public Use
  Company Number: CN-ASTRAZENECA-2009SE07140

PATIENT
  Age: 12 Year
  Sex: Female
  Weight: 22 kg

DRUGS (6)
  1. PROPOFOL [Suspect]
     Indication: SEDATION
     Dosage: 15 MG WAS INJECTED AT SPEED OF 10 MG/KG/H
     Route: 042
  2. PROPOFOL [Suspect]
     Route: 042
  3. ATROPINE [Concomitant]
     Route: 030
  4. PHENOBARBITAL SODIUM 100MG CAP [Concomitant]
     Route: 030
  5. LIDOCAINE [Concomitant]
     Dosage: 1% LIDOCAINE WITH 0.2% DICAINE 3 ML
     Route: 008
  6. DICAIN [Concomitant]
     Route: 008

REACTIONS (5)
  - BLOOD PRESSURE DECREASED [None]
  - FLUSHING [None]
  - LOSS OF CONSCIOUSNESS [None]
  - MUSCLE SPASMS [None]
  - RESTLESSNESS [None]
